FAERS Safety Report 6578797-4 (Version None)
Quarter: 2010Q1

REPORT INFORMATION
  Report Type: 
  Country: None (occurrence: None)
  Receive Date: 20100202
  Receipt Date: 20100122
  Transmission Date: 20100710
  Serious: Yes (Other)
  Sender: FDA-Public Use
  Company Number: 230087J10BRA

PATIENT
  Age: 39 Year
  Sex: Female

DRUGS (5)
  1. REBIF [Suspect]
     Indication: RELAPSING-REMITTING MULTIPLE SCLEROSIS
     Dosage: 22 MCG, 3 IN 1 WEEKS
     Dates: start: 20030421
  2. SYNTHROID [Concomitant]
  3. OMEPRAZOLE [Concomitant]
  4. YAZ (DROSPIRENONE WITH ETHYNILESTRADIOL)(DROSPIRENONE W/ETHINYLESTRADI [Concomitant]
  5. OTHERS (ALL OTHER THERAPEUTIC PRODUCTS) [Concomitant]

REACTIONS (2)
  - INFLUENZA [None]
  - UTERINE LEIOMYOMA [None]
